FAERS Safety Report 9958792 (Version 2)
Quarter: 2014Q1

REPORT INFORMATION
  Report Type: Report from Study
  Country: US (occurrence: US)
  Receive Date: 20140305
  Receipt Date: 20140305
  Transmission Date: 20141002
  Serious: No
  Sender: FDA-Public Use
  Company Number: US-ABBVIE-13P-163-1076763-00

PATIENT
  Age: 68 Year
  Sex: Female

DRUGS (8)
  1. HUMIRA [Suspect]
     Indication: ANKYLOSING SPONDYLITIS
     Dates: start: 201211
  2. METFORMIN [Concomitant]
     Indication: DIABETES MELLITUS
  3. FUROSEMIDE [Concomitant]
     Indication: FLUID RETENTION
     Dosage: DAILY
  4. FUROSEMIDE [Concomitant]
     Indication: BLOOD PRESSURE
  5. KLOR-CON [Concomitant]
     Indication: BLOOD POTASSIUM DECREASED
     Dosage: 10 MG DAILY
  6. ZEGERID [Concomitant]
     Indication: GASTROOESOPHAGEAL REFLUX DISEASE
  7. PROBIOTICS [Concomitant]
     Indication: GASTROOESOPHAGEAL REFLUX DISEASE
  8. PRESCRIPTION NASAL SPRAY [Concomitant]
     Indication: SEASONAL ALLERGY
     Dosage: 2 SUIRTS IN EACH NOSTRIL

REACTIONS (7)
  - Fatigue [Recovering/Resolving]
  - Arthralgia [Recovering/Resolving]
  - Neck pain [Recovering/Resolving]
  - Blood pressure increased [Recovering/Resolving]
  - Vitamin D decreased [Recovering/Resolving]
  - Insomnia [Recovering/Resolving]
  - Respiratory tract infection [Recovering/Resolving]
